FAERS Safety Report 25749729 (Version 1)
Quarter: 2025Q3

REPORT INFORMATION
  Report Type: Report from Study
  Country: CO (occurrence: CO)
  Receive Date: 20250902
  Receipt Date: 20250902
  Transmission Date: 20251020
  Serious: Yes (Hospitalization)
  Sender: RECORDATI
  Company Number: CO-RECORDATI RARE DISEASES-2025005476

PATIENT
  Age: 31 Year
  Sex: Male
  Weight: 67 kg

DRUGS (1)
  1. PANHEMATIN [Suspect]
     Active Substance: HEMIN
     Indication: Porphyria acute
     Dosage: 1 DOSAGE FORM, QD (1 VIAL)
     Route: 042
     Dates: start: 20250725, end: 20250726

REACTIONS (3)
  - Vomiting [Recovered/Resolved]
  - Myalgia [Recovered/Resolved]
  - Off label use [Recovered/Resolved]

NARRATIVE: CASE EVENT DATE: 20250725
